FAERS Safety Report 13383874 (Version 5)
Quarter: 2018Q1

REPORT INFORMATION
  Report Type: Spontaneous
  Country: US (occurrence: US)
  Receive Date: 20170329
  Receipt Date: 20180131
  Transmission Date: 20180508
  Serious: Yes (Other)
  Sender: FDA-Public Use
  Company Number: US-PFIZER INC-2017132755

PATIENT
  Age: 49 Year
  Sex: Female
  Weight: 68.93 kg

DRUGS (4)
  1. IBRANCE [Suspect]
     Active Substance: PALBOCICLIB
     Indication: OVARIAN CANCER
     Dosage: 75 MG, CYCLIC (1 CAPSULE DAILY/1 TO 21 DAYS)
     Route: 048
     Dates: start: 20170403
  2. IBRANCE [Suspect]
     Active Substance: PALBOCICLIB
     Indication: BREAST CANCER
     Dosage: 75 MG, CYCLIC (1 CAPSULE DAILY/1-21/DAYS )
     Route: 048
     Dates: start: 20170324
  3. IBRANCE [Suspect]
     Active Substance: PALBOCICLIB
     Dosage: 75 MG, CYCLIC (1 CAPSULE DAILY 1-21 DAYS)
     Route: 048
     Dates: start: 20170324
  4. IBRANCE [Suspect]
     Active Substance: PALBOCICLIB
     Dosage: 75 MG, CYCLIC (1 CAPSULE DAILY 1-21 DAYS)
     Route: 048
     Dates: start: 20170403

REACTIONS (8)
  - Hepatitis [Unknown]
  - Dizziness [Unknown]
  - Nausea [Unknown]
  - Alopecia [Unknown]
  - White blood cell count decreased [Unknown]
  - Contusion [Unknown]
  - Hot flush [Unknown]
  - Neuropathy peripheral [Unknown]
